FAERS Safety Report 7792214-8 (Version None)
Quarter: 2011Q4

REPORT INFORMATION
  Report Type: 
  Country: None (occurrence: None)
  Receive Date: 20111003
  Receipt Date: 20111003
  Transmission Date: 20120403
  Serious: Yes (Life-Threatening)
  Sender: FDA-Public Use
  Company Number: None

PATIENT
  Age: 62 Year
  Sex: Female
  Weight: 58.059 kg

DRUGS (2)
  1. METRONIDAZOLE [Suspect]
     Indication: HAEMATURIA
     Dosage: 500MG
     Route: 048
     Dates: start: 20110925, end: 20110926
  2. METRONIDAZOLE [Suspect]
     Indication: DIVERTICULITIS
     Dosage: 500MG
     Route: 048
     Dates: start: 20110925, end: 20110926

REACTIONS (5)
  - MALAISE [None]
  - PYREXIA [None]
  - VOMITING [None]
  - NAUSEA [None]
  - MUSCULOSKELETAL STIFFNESS [None]
